FAERS Safety Report 9156020 (Version 1)
Quarter: 2013Q1

REPORT INFORMATION
  Report Type: Spontaneous
  Country: US (occurrence: US)
  Receive Date: 20130311
  Receipt Date: 20130311
  Transmission Date: 20140127
  Serious: No
  Sender: FDA-Public Use
  Company Number: US-ASTRAZENECA-2013SE12930

PATIENT
  Age: 77 Year
  Sex: Female
  Weight: 53.5 kg

DRUGS (3)
  1. CRESTOR [Suspect]
     Indication: BLOOD CHOLESTEROL INCREASED
     Route: 048
  2. CRESTOR [Suspect]
     Indication: BLOOD CHOLESTEROL INCREASED
     Route: 048
     Dates: start: 201301
  3. CRESTOR [Suspect]
     Indication: BLOOD CHOLESTEROL INCREASED
     Route: 048

REACTIONS (11)
  - Herpes zoster [Unknown]
  - Diarrhoea [Unknown]
  - Vomiting [Unknown]
  - Pain [Unknown]
  - Fall [Unknown]
  - Food poisoning [Unknown]
  - Contusion [Unknown]
  - Activities of daily living impaired [Unknown]
  - Arthralgia [Unknown]
  - Sleep disorder due to general medical condition, insomnia type [Unknown]
  - Intentional drug misuse [Unknown]
